FAERS Safety Report 7125447-4 (Version None)
Quarter: 2010Q4

REPORT INFORMATION
  Report Type: 
  Country: None (occurrence: None)
  Receive Date: 20101112
  Receipt Date: 20101028
  Transmission Date: 20110411
  Serious: Yes (Other)
  Sender: FDA-Public Use
  Company Number: MC201000325

PATIENT
  Age: 57 Year
  Sex: Male
  Weight: 72.6 kg

DRUGS (19)
  1. ANGIOMAX [Suspect]
     Indication: ANTICOAGULANT THERAPY
     Dosage: 11.3 ML (CC), BOLUS, INTRAVENOUS; 26 ML (CC), HR, INTRAVENOUS
     Route: 042
     Dates: start: 20071203, end: 20071203
  2. ANGIOMAX [Suspect]
     Indication: ANTICOAGULANT THERAPY
     Dosage: 11.3 ML (CC), BOLUS, INTRAVENOUS; 26 ML (CC), HR, INTRAVENOUS
     Route: 042
     Dates: start: 20071203, end: 20071203
  3. HEPARIN SODIUM [Suspect]
     Indication: MYOCARDIAL INFARCTION
     Dosage: INTRAVENOUS
     Route: 042
     Dates: start: 20071201
  4. REOPRO [Suspect]
     Indication: ANTICOAGULANT THERAPY
     Dosage: 9.1 ML, BOLUS, INTRAVENOUS; 15 ML(CC), HR, INTRAVENOUS
     Route: 042
     Dates: start: 20071203, end: 20071203
  5. REOPRO [Suspect]
     Indication: ANTICOAGULANT THERAPY
     Dosage: 9.1 ML, BOLUS, INTRAVENOUS; 15 ML(CC), HR, INTRAVENOUS
     Route: 042
     Dates: start: 20071203, end: 20071204
  6. TOPROL-XL [Concomitant]
  7. ZOCOR [Concomitant]
  8. ASPIRIN [Concomitant]
  9. PLAVIX [Concomitant]
  10. LOPRESSOR [Concomitant]
  11. EZETIMIBE [Concomitant]
  12. PROTONIX [Concomitant]
  13. PERCOCET [Concomitant]
  14. VERSED [Concomitant]
  15. FENTANYL [Concomitant]
  16. LIDOCAINE (LIDOCAINE HYDROCHLORIDE) [Concomitant]
  17. PROPFOL [Concomitant]
  18. REGLAN [Concomitant]
  19. DEXTROSE W/NITROGLYCERINE (GLUCOSE, GLYCERYL TRINITRATE) [Concomitant]

REACTIONS (8)
  - HAEMATOMA [None]
  - HEADACHE [None]
  - HEPARIN-INDUCED THROMBOCYTOPENIA [None]
  - HYPERSENSITIVITY [None]
  - HYPOTENSION [None]
  - MYOCARDIAL INFARCTION [None]
  - POST PROCEDURAL HAEMATOMA [None]
  - THROMBOCYTOPENIA [None]
